FAERS Safety Report 8516588-5 (Version None)
Quarter: 2012Q3

REPORT INFORMATION
  Report Type: 
  Country: None (occurrence: None)
  Receive Date: 20120718
  Receipt Date: 20120711
  Transmission Date: 20120928
  Serious: No
  Sender: FDA-Public Use
  Company Number: US-ASTRAZENECA-2011SE41450

PATIENT
  Age: 59 Year
  Sex: Female

DRUGS (43)
  1. NEXIUM [Suspect]
     Route: 048
  2. NEXIUM [Suspect]
     Route: 048
     Dates: start: 20050225
  3. NEXIUM [Suspect]
     Route: 048
     Dates: start: 20090622
  4. CELLCEPT [Concomitant]
     Dates: start: 20061116
  5. SINGULAIR [Concomitant]
     Indication: SINUS DISORDER
  6. GABAPENTIN [Concomitant]
     Indication: PAIN
     Dosage: 300 MG, 3 TABLETS AT BEDTIME
  7. PEPCID [Concomitant]
     Dates: start: 19920101, end: 19940101
  8. NEXIUM [Suspect]
     Route: 048
  9. NEXIUM [Suspect]
     Route: 048
     Dates: start: 20090622
  10. LORATADINE [Concomitant]
     Indication: SINUS DISORDER
     Route: 048
  11. DIAZEPAM [Concomitant]
     Indication: DEPRESSION
  12. HYDROCODONE [Concomitant]
     Indication: BONE PAIN
     Dosage: 5 TO 3.25 MG, 6 TO 8 HOURS AS NEEDED
  13. MESTINON [Concomitant]
     Dates: start: 20090622
  14. EFFEXOR [Concomitant]
     Route: 048
     Dates: start: 20041215
  15. DETROL XL [Concomitant]
     Dosage: EVERY DAY
     Dates: start: 20070308
  16. NEXIUM [Suspect]
     Indication: GASTROOESOPHAGEAL REFLUX DISEASE
     Dosage: 20 OR 40 MG ONCE A DAY
     Route: 048
     Dates: start: 20010101, end: 20110101
  17. ZANTAC [Concomitant]
     Dosage: ONCE A DAY
     Dates: start: 19920101, end: 19940101
  18. MESTRON [Concomitant]
     Indication: MUSCLE DISORDER
  19. PANTOPRAZOLE [Concomitant]
     Indication: ABDOMINAL DISCOMFORT
  20. DIAZEPAM [Concomitant]
     Indication: SLEEP DISORDER
  21. NEXIUM [Suspect]
     Route: 048
     Dates: start: 20050225
  22. PREMARIN [Concomitant]
     Dates: start: 20070308
  23. ASPIRIN [Concomitant]
     Indication: CARDIAC DISORDER
  24. FLUCONAZOLE [Concomitant]
     Route: 048
     Dates: start: 20050202
  25. ZOLOFT [Concomitant]
     Dates: start: 20061116
  26. NEXIUM [Suspect]
     Indication: ABDOMINAL DISCOMFORT
     Dosage: 20 OR 40 MG ONCE A DAY
     Route: 048
     Dates: start: 20010101, end: 20110101
  27. PRILOSEC [Concomitant]
  28. PREMARIN [Concomitant]
     Indication: HORMONE LEVEL ABNORMAL
  29. CARVEDILOL [Concomitant]
     Indication: BLOOD PRESSURE
  30. PRISTIQ [Concomitant]
     Indication: POOR QUALITY SLEEP
  31. MESTINON [Concomitant]
     Dates: start: 20061116
  32. DETROL XL [Concomitant]
     Indication: HYPERTONIC BLADDER
     Dates: start: 20061116
  33. FOSAMAX [Concomitant]
     Indication: OSTEOPOROSIS
  34. LIPITOR [Concomitant]
     Indication: BLOOD CHOLESTEROL
  35. NEXIUM [Suspect]
     Route: 048
  36. NEXIUM [Suspect]
     Route: 048
     Dates: start: 20090622
  37. PREMARIN [Concomitant]
     Dosage: 625
     Dates: start: 20061116
  38. SUCRALFATE [Concomitant]
     Indication: GASTRITIS PROPHYLAXIS
     Dosage: 1 GM, 1 TABLET, 1/2 HOURBEFORE EACH MEAL
  39. CYCLOBENAZPRINE [Concomitant]
     Route: 048
     Dates: start: 20050202
  40. NEXIUM [Suspect]
     Indication: ULCER
     Dosage: 20 OR 40 MG ONCE A DAY
     Route: 048
     Dates: start: 20010101, end: 20110101
  41. NEXIUM [Suspect]
     Route: 048
     Dates: start: 20050225
  42. CELLCEPT [Concomitant]
     Indication: MUSCLE DISORDER
     Dosage: 500 MG, 2 TABLETS, TWICE A DAY
  43. PREMARIN [Concomitant]
     Dates: start: 20090622

REACTIONS (13)
  - VITAMIN D DEFICIENCY [None]
  - POOR QUALITY SLEEP [None]
  - DEPRESSION [None]
  - DYSPHAGIA [None]
  - PYREXIA [None]
  - CHILLS [None]
  - ANKLE FRACTURE [None]
  - CALCIUM DEFICIENCY [None]
  - OSTEOPOROSIS [None]
  - GRIEF REACTION [None]
  - ARTHRITIS [None]
  - GASTRIC DISORDER [None]
  - DYSPEPSIA [None]
